FAERS Safety Report 6056468-0 (Version None)
Quarter: 2009Q1

REPORT INFORMATION
  Report Type: 
  Country: None (occurrence: None)
  Receive Date: 20090126
  Receipt Date: 20081229
  Transmission Date: 20090719
  Serious: Yes (Hospitalization)
  Sender: FDA-Public Use
  Company Number: 147558

PATIENT
  Age: 30 Year
  Sex: Female
  Weight: 63 kg

DRUGS (12)
  1. CYTARABINE [Suspect]
     Indication: ACUTE MYELOID LEUKAEMIA
     Dosage: 350 MG
     Dates: start: 20081013
  2. ZAVEDOS [Suspect]
     Indication: ACUTE MYELOID LEUKAEMIA
     Dosage: 21 MG
     Dates: start: 20081013
  3. OXAZEPAM [Concomitant]
  4. ALLOPURINOL [Concomitant]
  5. TIENAM [Concomitant]
  6. KONAKION [Concomitant]
  7. TRAMADOL HCL [Concomitant]
  8. ORGAMETRIL [Concomitant]
  9. CIPROFLOXACIN HCL [Concomitant]
  10. FLUCONAZOLE [Concomitant]
  11. METOCLOPRAMIDE [Concomitant]
  12. LORAZEPAM [Concomitant]

REACTIONS (2)
  - RHABDOMYOLYSIS [None]
  - STREPTOCOCCAL INFECTION [None]
